FAERS Safety Report 12770853 (Version 1)
Quarter: 2016Q3

REPORT INFORMATION
  Report Type: Spontaneous
  Country: US (occurrence: US)
  Receive Date: 20160921
  Receipt Date: 20160921
  Transmission Date: 20161109
  Serious: No
  Sender: FDA-Public Use
  Company Number: None

PATIENT
  Age: 51 Year
  Sex: Male
  Weight: 119.25 kg

DRUGS (5)
  1. HYOSCYAMINE SULFATE. [Suspect]
     Active Substance: HYOSCYAMINE SULFATE
     Indication: IRRITABLE BOWEL SYNDROME
     Route: 048
     Dates: start: 20160805, end: 20160919
  2. ONE-A-DAY NOS [Concomitant]
     Active Substance: MINERALS\VITAMINS
  3. ESCITALOPRAM [Concomitant]
     Active Substance: ESCITALOPRAM OXALATE
  4. IMODIUM AD [Concomitant]
     Active Substance: LOPERAMIDE HYDROCHLORIDE
  5. BUSPORIN [Concomitant]

REACTIONS (1)
  - Dizziness [None]

NARRATIVE: CASE EVENT DATE: 20160911
